FAERS Safety Report 9444078 (Version 1)
Quarter: 2013Q3

REPORT INFORMATION
  Report Type: Spontaneous
  Country: IT (occurrence: IT)
  Receive Date: 20130807
  Receipt Date: 20130807
  Transmission Date: 20140515
  Serious: Yes (Hospitalization, Other)
  Sender: FDA-Public Use
  Company Number: IT-RANBAXY-2013RR-71614

PATIENT
  Age: 59 Year
  Sex: Female

DRUGS (1)
  1. PARACETAMOL/CODEINE [Suspect]
     Indication: HYPERPYREXIA
     Dosage: A TABLET
     Route: 065

REACTIONS (2)
  - Autoimmune haemolytic anaemia [Recovering/Resolving]
  - Disseminated intravascular coagulation [Recovering/Resolving]
